FAERS Safety Report 6271341-0 (Version None)
Quarter: 2009Q3

REPORT INFORMATION
  Report Type: 
  Country: None (occurrence: None)
  Receive Date: 20090717
  Receipt Date: 20090710
  Transmission Date: 20100115
  Serious: Yes (Hospitalization)
  Sender: FDA-Public Use
  Company Number: US-KINGPHARMUSA00001-K200900824

PATIENT
  Sex: Female

DRUGS (3)
  1. CORGARD [Suspect]
     Indication: PROPHYLAXIS
     Dosage: 80 MG, QD
     Route: 048
     Dates: start: 19990101
  2. PLAVIX [Concomitant]
  3. TAHOR [Concomitant]

REACTIONS (2)
  - CONFUSIONAL STATE [None]
  - DEPRESSION [None]
